FAERS Safety Report 15233338 (Version 1)
Quarter: 2018Q3

REPORT INFORMATION
  Report Type: Spontaneous
  Country: US (occurrence: US)
  Receive Date: 20180802
  Receipt Date: 20180802
  Transmission Date: 20181010
  Serious: Yes (Other)
  Sender: FDA-Public Use
  Company Number: US-SA-2018SA193798

PATIENT
  Age: 67 Year
  Sex: Female

DRUGS (1)
  1. LANTUS [Suspect]
     Active Substance: INSULIN GLARGINE
     Indication: TYPE 1 DIABETES MELLITUS
     Dosage: 30 U, BID

REACTIONS (5)
  - Neuropathy peripheral [Unknown]
  - Drug dose omission [Unknown]
  - Endometrial cancer [Unknown]
  - Injection site pain [Unknown]
  - Device issue [Recovered/Resolved]
